FAERS Safety Report 22173166 (Version 1)
Quarter: 2023Q2

REPORT INFORMATION
  Report Type: Spontaneous
  Country: US (occurrence: US)
  Receive Date: 20230404
  Receipt Date: 20230404
  Transmission Date: 20230721
  Serious: Yes (Death, Hospitalization, Other)
  Sender: FDA-Public Use
  Company Number: US-AMGEN-USASP2023056472

PATIENT
  Age: 70 Year

DRUGS (1)
  1. LUMAKRAS [Suspect]
     Active Substance: SOTORASIB
     Indication: Non-small cell lung cancer
     Dosage: UNK
     Route: 065

REACTIONS (2)
  - Non-small cell lung cancer [Fatal]
  - Diarrhoea [Unknown]
